FAERS Safety Report 5492910-1 (Version None)
Quarter: 2007Q4

REPORT INFORMATION
  Report Type: 
  Country: None (occurrence: None)
  Receive Date: 20071023
  Receipt Date: 20071009
  Transmission Date: 20080405
  Serious: Yes (Hospitalization)
  Sender: FDA-Public Use
  Company Number: US-JNJFOC-20071002825

PATIENT
  Sex: Female

DRUGS (15)
  1. LEVAQUIN [Suspect]
     Indication: PNEUMONIA
     Route: 042
  2. LEVAQUIN [Suspect]
     Indication: DRUG USE FOR UNKNOWN INDICATION
     Route: 065
  3. ASPIRIN [Concomitant]
     Indication: ANTICOAGULANT THERAPY
     Route: 065
  4. SOMA [Concomitant]
     Indication: SLEEP DISORDER
     Route: 065
  5. SOMA [Concomitant]
     Indication: BACK PAIN
     Route: 065
  6. PEPSID [Concomitant]
     Indication: GASTROINTESTINAL DISORDER THERAPY
     Route: 065
  7. FOLIC ACID [Concomitant]
     Route: 065
  8. METHADONE HCL [Concomitant]
     Indication: BACK PAIN
     Route: 048
  9. SOLUMEDRAL [Concomitant]
     Indication: RESPIRATION ABNORMAL
     Route: 065
  10. REGLAN [Concomitant]
     Indication: BOWEL MOVEMENT IRREGULARITY
     Route: 065
  11. FLAGYL [Concomitant]
     Indication: PNEUMONIA
     Route: 065
  12. NYSTATIN [Concomitant]
     Indication: CANDIDIASIS
     Route: 065
  13. PROTONIX [Concomitant]
     Indication: GASTRIC DISORDER
     Route: 065
  14. POTASSIUM CHLORIDE [Concomitant]
     Indication: DRUG USE FOR UNKNOWN INDICATION
     Route: 065
  15. ALTACE [Concomitant]
     Indication: BLOOD PRESSURE
     Route: 065

REACTIONS (1)
  - ABDOMINAL DISCOMFORT [None]
